FAERS Safety Report 10247821 (Version 1)
Quarter: 2014Q2

REPORT INFORMATION
  Report Type: Spontaneous
  Country: US (occurrence: US)
  Receive Date: 20140619
  Receipt Date: 20140619
  Transmission Date: 20141212
  Serious: No
  Sender: FDA-Public Use
  Company Number: US-ASTRAZENECA-2014SE21953

PATIENT
  Age: 60 Year
  Sex: Female

DRUGS (3)
  1. BRILINTA [Suspect]
     Indication: CATHETERISATION CARDIAC
     Route: 048
     Dates: start: 2014, end: 2014
  2. CRESTOR [Suspect]
     Route: 048
  3. COREG [Concomitant]

REACTIONS (3)
  - Fatigue [Unknown]
  - Depressed mood [Unknown]
  - Dyspnoea [Unknown]
